FAERS Safety Report 4278833-4 (Version None)
Quarter: 2004Q1

REPORT INFORMATION
  Report Type: 
  Country: None (occurrence: None)
  Receive Date: 20040122
  Receipt Date: 20040113
  Transmission Date: 20041129
  Serious: Yes (Death, Hospitalization)
  Sender: FDA-Public Use
  Company Number: HQWYE286313JAN04

PATIENT
  Age: 71 Year
  Sex: Male

DRUGS (8)
  1. PROPRANOLOL HCL [Suspect]
     Dosage: 160 MG 1X PER 1 DAY
     Route: 048
  2. ALBUMIN ^BEHRING^ (ALBUMIN NORMAL HUMAN SERUM) [Suspect]
     Dosage: 20 % (UNSPECIFIED)
     Route: 042
     Dates: start: 20031119, end: 20031121
  3. ALDACTONE [Suspect]
     Dosage: 150 MG 1X PER 1 DAY
     Route: 048
     Dates: end: 20031121
  4. GLYPRESSINE (TERLIPRESSIN ACETATE) [Suspect]
     Dosage: UNSPECIFIED
     Route: 042
     Dates: start: 20031120, end: 20031125
  5. LASIX [Suspect]
     Dosage: 40 MG 1X PER 1 DAY
     Route: 048
     Dates: end: 20031121
  6. VIT B1 IN COMBINATION WITH VITAMINE B6 AND B12 [Concomitant]
  7. PHOSPHALUGEL (ALUMINIUM PHOSPHATE GEL) [Concomitant]
  8. DUPHALAC [Concomitant]

REACTIONS (7)
  - CARDIO-RESPIRATORY ARREST [None]
  - HEPATIC ENCEPHALOPATHY [None]
  - PENILE ULCERATION [None]
  - PLEURAL EFFUSION [None]
  - SCROTAL ULCER [None]
  - SKIN NECROSIS [None]
  - THROMBOCYTOPENIC PURPURA [None]
